FAERS Safety Report 21464813 (Version 1)
Quarter: 2022Q4

REPORT INFORMATION
  Report Type: Report from Study
  Country: CN (occurrence: CN)
  Receive Date: 20221017
  Receipt Date: 20221017
  Transmission Date: 20230113
  Serious: Yes (Other)
  Sender: FDA-Public Use
  Company Number: CN-Accord-282089

PATIENT
  Sex: Female

DRUGS (3)
  1. FLUOROURACIL [Suspect]
     Active Substance: FLUOROURACIL
     Indication: Cholangiocarcinoma
     Dosage: 5-FU, 2400 MG/M2 MAINTAIN 44-46 H, HEPATIC ARTERIAL INFUSION
  2. IRINOTECAN [Suspect]
     Active Substance: IRINOTECAN
     Indication: Cholangiocarcinoma
     Dosage: 180 MG/M2 30-90 MIN, D1, HEPATIC ARTERIAL INFUSION
  3. LEUCOVORIN [Suspect]
     Active Substance: LEUCOVORIN
     Indication: Cholangiocarcinoma
     Dosage: LV, 400 MG/M2 GIVEN 2 H, D1, HEPATIC ARTERIAL INFUSION

REACTIONS (1)
  - Embolism arterial [Recovered/Resolved]
